FAERS Safety Report 7124178-4 (Version None)
Quarter: 2010Q4

REPORT INFORMATION
  Report Type: 
  Country: None (occurrence: None)
  Receive Date: 20101126
  Receipt Date: 20101117
  Transmission Date: 20110411
  Serious: Yes (Hospitalization, Other)
  Sender: FDA-Public Use
  Company Number: PHHY2010CA73651

PATIENT
  Sex: Female

DRUGS (2)
  1. SANDOSTATIN LAR [Suspect]
     Indication: METASTATIC NEOPLASM
     Dosage: 40 MG, QMO
     Route: 030
     Dates: start: 20081030, end: 20101028
  2. SANDOSTATIN LAR [Suspect]
     Dosage: 40 MG EVERY 4 WEEK
     Route: 030

REACTIONS (4)
  - JAUNDICE [None]
  - LETHARGY [None]
  - MALIGNANT NEOPLASM PROGRESSION [None]
  - PALLIATIVE CARE [None]
